FAERS Safety Report 17258290 (Version 1)
Quarter: 2020Q1

REPORT INFORMATION
  Report Type: Spontaneous
  Country: US (occurrence: US)
  Receive Date: 20200110
  Receipt Date: 20200110
  Transmission Date: 20200409
  Serious: Yes (Other)
  Sender: FDA-Public Use
  Company Number: US-GLENMARK PHARMACEUTICALS-2019GMK043119

PATIENT

DRUGS (2)
  1. INDOMETHACIN CAPSULES [Suspect]
     Active Substance: INDOMETHACIN
     Indication: GOUT
     Dosage: UNK
     Route: 065
  2. TOVIAZ [Concomitant]
     Active Substance: FESOTERODINE FUMARATE
     Indication: URINARY INCONTINENCE
     Dosage: UNK
     Route: 065

REACTIONS (3)
  - Therapeutic response unexpected [Unknown]
  - Gastric ulcer [Unknown]
  - Gastric ulcer haemorrhage [Unknown]
